FAERS Safety Report 9832140 (Version 1)
Quarter: 2014Q1

REPORT INFORMATION
  Report Type: Report from Study
  Country: BR (occurrence: BR)
  Receive Date: 20140121
  Receipt Date: 20140121
  Transmission Date: 20141002
  Serious: Yes (Other)
  Sender: FDA-Public Use
  Company Number: PHHY2014BR005880

PATIENT
  Age: 69 Year
  Sex: Female
  Weight: 70 kg

DRUGS (5)
  1. ACLASTA [Suspect]
     Indication: OSTEOPOROSIS
     Dosage: 5 MG, PER 100 ML
     Route: 042
     Dates: start: 20140115
  2. DIOVAN [Concomitant]
     Dosage: 80 MG,(MORE THAN 10 YEARS AGO)
  3. DIAMICRON [Concomitant]
     Dosage: (2 YEARS)
  4. EPREX [Concomitant]
     Dosage: 4 ML, UNK
     Dates: start: 20121001
  5. CYMBALTA [Concomitant]
     Dosage: 60 MG, (MORE THAN 5 YEARS)

REACTIONS (4)
  - Tremor [Recovering/Resolving]
  - Nausea [Recovering/Resolving]
  - Vomiting [Recovering/Resolving]
  - Pyrexia [Recovering/Resolving]
